FAERS Safety Report 23660527 (Version 1)
Quarter: 2024Q1

REPORT INFORMATION
  Report Type: Spontaneous
  Country: CN (occurrence: CN)
  Receive Date: 20240322
  Receipt Date: 20240322
  Transmission Date: 20240410
  Serious: Yes (Hospitalization, Other)
  Sender: FDA-Public Use
  Company Number: CN-009507513-2403CHN006462

PATIENT
  Age: 59 Year
  Sex: Male
  Weight: 53 kg

DRUGS (6)
  1. CILASTATIN SODIUM\IMIPENEM [Suspect]
     Active Substance: CILASTATIN SODIUM\IMIPENEM
     Indication: Septic shock
     Dosage: 1G, Q8H
     Route: 041
     Dates: start: 20240311, end: 20240313
  2. VANCOCIN [Suspect]
     Active Substance: VANCOMYCIN HYDROCHLORIDE
     Indication: Septic shock
     Dosage: 1G, Q12H
     Route: 041
     Dates: start: 20240311, end: 20240312
  3. DIFLUCAN [Suspect]
     Active Substance: FLUCONAZOLE
     Indication: Septic shock
     Dosage: 0.2G, QD
     Route: 041
     Dates: start: 20240311, end: 20240313
  4. OXALIPLATIN [Suspect]
     Active Substance: OXALIPLATIN
     Indication: Rectal cancer
     Dosage: 0.1G, QD (D2)
     Route: 041
     Dates: start: 20240305, end: 20240305
  5. FLUOROURACIL [Suspect]
     Active Substance: FLUOROURACIL
     Indication: Rectal cancer
     Dosage: 4G, QD (D2, 46H)
     Route: 041
     Dates: start: 20240305, end: 20240306
  6. BEVACIZUMAB [Suspect]
     Active Substance: BEVACIZUMAB
     Indication: Rectal cancer
     Dosage: 0.3G, QD (D1)
     Route: 041
     Dates: start: 20240304, end: 20240304

REACTIONS (3)
  - Platelet count decreased [Unknown]
  - Rectal cancer [Unknown]
  - Septic shock [Unknown]

NARRATIVE: CASE EVENT DATE: 20240311
